FAERS Safety Report 9074251 (Version 1)
Quarter: 2013Q1

REPORT INFORMATION
  Report Type: Report from Study
  Country: US (occurrence: US)
  Receive Date: 20130128
  Receipt Date: 20130128
  Transmission Date: 20140127
  Serious: No
  Sender: FDA-Public Use
  Company Number: US-ABBOTT-12P-163-0916427-00

PATIENT
  Age: 42 Year
  Sex: Female

DRUGS (20)
  1. HUMIRA 40 MG/0.8 ML PEN [Suspect]
     Indication: RHEUMATOID ARTHRITIS
     Dates: start: 201010, end: 201104
  2. HUMIRA 40 MG/0.8 ML PEN [Suspect]
     Dates: start: 201110, end: 201201
  3. HUMIRA 40 MG/0.8 ML PEN [Suspect]
     Dates: start: 20120218
  4. MULTIVITAMIN [Concomitant]
     Indication: PRODUCT USED FOR UNKNOWN INDICATION
     Dosage: DAILY
  5. OXYCONTIN [Concomitant]
     Indication: RHEUMATOID ARTHRITIS
  6. OXYCONTIN [Concomitant]
     Indication: PAIN
  7. SAVELLA [Concomitant]
     Indication: FIBROMYALGIA
  8. VITAMIN D [Concomitant]
     Indication: VITAMIN SUPPLEMENTATION
     Dosage: DAILY
  9. CRESTOR [Concomitant]
     Indication: BLOOD CHOLESTEROL INCREASED
  10. WELLBUTRIN SR [Concomitant]
     Indication: DEPRESSION
  11. L METHYLFOLATE [Concomitant]
     Indication: BLOOD FOLATE
  12. NADUMETONE [Concomitant]
     Indication: ANTIINFLAMMATORY THERAPY
  13. OXYCODONE [Concomitant]
     Indication: RHEUMATOID ARTHRITIS
  14. OXYCODONE [Concomitant]
     Indication: PAIN
  15. OXYCODONE [Concomitant]
     Indication: FIBROMYALGIA
  16. ORPHENADRINE CITRATE [Concomitant]
     Indication: MUSCLE RELAXANT THERAPY
     Dosage: AT BEDTIME
  17. CYCLOBENZAPRINE [Concomitant]
     Indication: MUSCLE RELAXANT THERAPY
     Dosage: AT BEDTIME
  18. TOPRAMAX [Concomitant]
     Indication: MIGRAINE PROPHYLAXIS
     Dosage: AT BEDTIME
  19. MELATONIN [Concomitant]
     Indication: INSOMNIA
     Dosage: AT BEDTIME
  20. SEROQUEL [Concomitant]
     Indication: INSOMNIA
     Dosage: A 16TH PORTION OF PILL WHICH IS SUPPOSED TO BE 10MG AT BEDTIME

REACTIONS (3)
  - Tooth infection [Recovered/Resolved]
  - Injection site pain [Not Recovered/Not Resolved]
  - Injection site pain [Not Recovered/Not Resolved]
